FAERS Safety Report 8990478 (Version 1)
Quarter: 2012Q4

REPORT INFORMATION
  Report Type: 
  Country: IE (occurrence: IE)
  Receive Date: 20121228
  Receipt Date: 20121228
  Transmission Date: 20130627
  Serious: Yes (Other)
  Sender: FDA-Public Use
  Company Number: IE-ASTRAZENECA-2012SE94929

PATIENT
  Age: 32872 Day
  Sex: Male
  Weight: 85 kg

DRUGS (9)
  1. SEROQUEL [Suspect]
     Indication: AGITATION
     Route: 048
     Dates: start: 20120305, end: 20121124
  2. GLUCOPHAGE [Concomitant]
  3. MAGNESIUM STEARATE [Concomitant]
  4. METFORMIN [Concomitant]
  5. METFORMIN HYDROCHLORIDE [Concomitant]
  6. POVIDONE [Concomitant]
  7. SENNA [Concomitant]
  8. FUROSEMIDE [Concomitant]
  9. ZOPICLONE [Concomitant]

REACTIONS (1)
  - Drug-induced liver injury [Recovering/Resolving]
